FAERS Safety Report 5048853-0 (Version None)
Quarter: 2006Q3

REPORT INFORMATION
  Report Type: 
  Country: None (occurrence: None)
  Receive Date: 20060712
  Receipt Date: 20060630
  Transmission Date: 20061208
  Serious: Yes (Other)
  Sender: FDA-Public Use
  Company Number: US-AVENTIS-200615618US

PATIENT
  Age: 73 Year
  Sex: Male

DRUGS (4)
  1. KETEK [Suspect]
     Indication: PNEUMONIA
     Dosage: DOSE: UNK
     Dates: start: 20050201, end: 20050201
  2. LITHIUM CARBONATE [Concomitant]
     Dosage: DOSE: UNK
  3. EFFEXOR [Concomitant]
     Dosage: DOSE: UNK
  4. CLONAZEPAM [Concomitant]
     Dosage: DOSE: UNK

REACTIONS (2)
  - ABDOMINAL DISTENSION [None]
  - ASCITES [None]
